FAERS Safety Report 20597507 (Version 1)
Quarter: 2022Q1

REPORT INFORMATION
  Report Type: Spontaneous
  Country: US (occurrence: None)
  Receive Date: 20220315
  Receipt Date: 20220315
  Transmission Date: 20220423
  Serious: No
  Sender: FDA-Public Use
  Company Number: None

PATIENT
  Age: 71 Year
  Sex: Female
  Weight: 47.25 kg

DRUGS (10)
  1. TERBINAFINE [Suspect]
     Active Substance: TERBINAFINE
     Indication: Onychomycosis
     Dosage: FREQUENCY : DAILY;?
     Route: 048
     Dates: start: 20220228, end: 20220315
  2. ARMOUR THYROID [Concomitant]
     Active Substance: THYROID, PORCINE
  3. PERCOCET [Concomitant]
     Active Substance: ACETAMINOPHEN\OXYCODONE HYDROCHLORIDE
  4. ipraproprium [Concomitant]
  5. bio-identical hormones [Concomitant]
  6. VITAMINS [Concomitant]
     Active Substance: VITAMINS
  7. CURCUMIN [Concomitant]
     Active Substance: CURCUMIN
  8. MAGNESIUM [Concomitant]
     Active Substance: MAGNESIUM
  9. MELATONIN [Concomitant]
     Active Substance: MELATONIN
  10. high b vitamins [Concomitant]

REACTIONS (2)
  - Restless legs syndrome [None]
  - Condition aggravated [None]

NARRATIVE: CASE EVENT DATE: 20220228
